FAERS Safety Report 4287018-7 (Version None)
Quarter: 2004Q1

REPORT INFORMATION
  Report Type: 
  Country: None (occurrence: None)
  Receive Date: 20040205
  Receipt Date: 20040121
  Transmission Date: 20041129
  Serious: Yes (Other)
  Sender: FDA-Public Use
  Company Number: USA040157238

PATIENT
  Age: 43 Year
  Sex: Female

DRUGS (2)
  1. FORTEO [Suspect]
  2. EVISTA [Suspect]

REACTIONS (4)
  - ABASIA [None]
  - DRUG INTERACTION [None]
  - HYPOKINESIA [None]
  - MUSCULOSKELETAL STIFFNESS [None]
